FAERS Safety Report 4748034-1 (Version None)
Quarter: 2005Q3

REPORT INFORMATION
  Report Type: 
  Country: None (occurrence: None)
  Receive Date: 20050818
  Receipt Date: 20050803
  Transmission Date: 20060218
  Serious: Yes (Hospitalization, Other)
  Sender: FDA-Public Use
  Company Number: PHBS2005JP11407

PATIENT
  Age: 32 Year
  Sex: Male

DRUGS (7)
  1. VOLTAREN [Suspect]
     Indication: NASOPHARYNGITIS
     Dosage: 3 DF/DAY
     Route: 048
     Dates: start: 20050725, end: 20050726
  2. LOXONIN [Suspect]
     Indication: NASOPHARYNGITIS
     Dosage: 3 DF/DAY
     Route: 048
     Dates: start: 20050726, end: 20050727
  3. TRANSAMIN [Suspect]
     Indication: NASOPHARYNGITIS
     Dosage: 6 DF/DAY
     Route: 048
     Dates: start: 20050725, end: 20050727
  4. MUCOSTA [Suspect]
     Indication: NASOPHARYNGITIS
     Dosage: 3 DF/DAY
     Route: 048
     Dates: start: 20050726, end: 20050727
  5. FLOMOX [Suspect]
     Indication: NASOPHARYNGITIS
     Dosage: 3 DF/DAY
     Route: 048
     Dates: start: 20050726, end: 20050727
  6. DASEN [Concomitant]
     Indication: NASOPHARYNGITIS
     Dosage: UNK, UNK
     Route: 048
     Dates: start: 20050725
  7. PL GRAN. [Concomitant]
     Indication: NASOPHARYNGITIS
     Dosage: UNK, UNK
     Route: 048
     Dates: start: 20050725

REACTIONS (7)
  - HEPATIC FAILURE [None]
  - HEPATITIS ACUTE [None]
  - HEPATORENAL SYNDROME [None]
  - JAUNDICE [None]
  - LIVER DISORDER [None]
  - MALAISE [None]
  - RENAL DISORDER [None]
